FAERS Safety Report 9133408 (Version 2)
Quarter: 2013Q2

REPORT INFORMATION
  Report Type: Spontaneous
  Country: US (occurrence: US)
  Receive Date: 20130301
  Receipt Date: 20130424
  Transmission Date: 20140414
  Serious: No
  Sender: FDA-Public Use
  Company Number: US-PFIZER INC-2013069859

PATIENT
  Age: 13 Year
  Sex: Female
  Weight: 55 kg

DRUGS (2)
  1. GENOTROPIN [Suspect]
     Indication: TURNER^S SYNDROME
     Dosage: 3 MG, 1X/DAY
     Route: 058
     Dates: start: 20130220, end: 20130223
  2. SYNTHROID [Concomitant]
     Dosage: 25 UG, 1X/DAY

REACTIONS (5)
  - Headache [Recovered/Resolved]
  - Oedema peripheral [Recovered/Resolved]
  - Pain in extremity [Recovered/Resolved]
  - Protein urine present [Unknown]
  - Reaction to preservatives [Unknown]
